FAERS Safety Report 7978271-4 (Version None)
Quarter: 2011Q4

REPORT INFORMATION
  Report Type: 
  Country: None (occurrence: None)
  Receive Date: 20111206
  Receipt Date: 20111128
  Transmission Date: 20120403
  Serious: Yes (Hospitalization)
  Sender: FDA-Public Use
  Company Number: 2011SP055579

PATIENT
  Age: 47 Year
  Sex: Male
  Weight: 78 kg

DRUGS (5)
  1. MULTI-VITAMIN [Concomitant]
  2. EXTRA STRENGTH TYLENOL [Concomitant]
  3. PEGINTERFERON ALFA-2B W/RIBAVIRIN (PEGYLATED INTERFERON ALFA-2B W/RIBA [Suspect]
     Indication: HEPATITIS C
     Dosage: PO
     Route: 048
     Dates: start: 20111106, end: 20111109
  4. METHADONE HCL [Concomitant]
  5. PEGINTERFERON ALFA-2B W/RIBAVIRIN (PEGYLATED INTERFERON ALFA-2B W/RIBA [Suspect]
     Indication: HEPATITIS C
     Dosage: 120 MCG;QW;SC
     Route: 058
     Dates: start: 20111010, end: 20111109

REACTIONS (4)
  - URINARY TRACT INFECTION [None]
  - ANAEMIA [None]
  - PARAPLEGIA [None]
  - LEUKOPENIA [None]
